FAERS Safety Report 5787695-5 (Version None)
Quarter: 2008Q2

REPORT INFORMATION
  Report Type: 
  Country: None (occurrence: None)
  Receive Date: 20080624
  Receipt Date: 20080624
  Transmission Date: 20081010
  Serious: No
  Sender: FDA-Public Use
  Company Number: None

PATIENT
  Age: 56 Year
  Sex: Male
  Weight: 71.67 kg

DRUGS (1)
  1. REPAGLINIDE [Suspect]
     Indication: DIABETES MELLITUS
     Dosage: 0.5 MG TID PO
     Route: 048
     Dates: start: 20080520, end: 20080620

REACTIONS (1)
  - DIARRHOEA [None]
